FAERS Safety Report 17641568 (Version 2)
Quarter: 2020Q2

REPORT INFORMATION
  Report Type: Spontaneous
  Country: GB (occurrence: GB)
  Receive Date: 20200407
  Receipt Date: 20200409
  Transmission Date: 20200713
  Serious: Yes (Hospitalization)
  Sender: FDA-Public Use
  Company Number: NVSC2020GB093310

PATIENT
  Age: 58 Year
  Sex: Male

DRUGS (5)
  1. OCTREOTIDE. [Suspect]
     Active Substance: OCTREOTIDE
     Indication: PANCREATIC NEUROENDOCRINE TUMOUR
     Dosage: UNK
     Route: 042
  2. LUTATHERA [Suspect]
     Active Substance: LUTETIUM OXODOTREOTIDE LU-177
     Indication: PANCREATIC NEUROENDOCRINE TUMOUR
     Dosage: 7.4 GBQ
     Route: 065
     Dates: start: 201805
  3. LUTATHERA [Suspect]
     Active Substance: LUTETIUM OXODOTREOTIDE LU-177
     Dosage: UNK
     Route: 065
     Dates: start: 201907
  4. LUTATHERA [Suspect]
     Active Substance: LUTETIUM OXODOTREOTIDE LU-177
     Dosage: UNK
     Route: 065
     Dates: start: 201807
  5. LUTATHERA [Suspect]
     Active Substance: LUTETIUM OXODOTREOTIDE LU-177
     Dosage: UNK
     Route: 065
     Dates: start: 201810

REACTIONS (6)
  - Lethargy [Unknown]
  - Weight increased [Recovering/Resolving]
  - Quality of life decreased [Recovering/Resolving]
  - Diarrhoea [Recovering/Resolving]
  - Decreased appetite [Unknown]
  - Pancreatic polypeptide level decreased [Unknown]
